FAERS Safety Report 15890457 (Version 1)
Quarter: 2019Q1

REPORT INFORMATION
  Report Type: Spontaneous
  Country: US (occurrence: US)
  Receive Date: 20190130
  Receipt Date: 20190130
  Transmission Date: 20190417
  Serious: Yes (Death, Life-Threatening)
  Sender: FDA-Public Use
  Company Number: None

PATIENT
  Age: 93 Year
  Sex: Female

DRUGS (1)
  1. NAPROXEN. [Suspect]
     Active Substance: NAPROXEN

REACTIONS (6)
  - Haematemesis [None]
  - Occult blood positive [None]
  - Diarrhoea [None]
  - Asthenia [None]
  - Duodenal ulcer [None]
  - Hypotension [None]

NARRATIVE: CASE EVENT DATE: 20180924
